FAERS Safety Report 4479583-1 (Version None)
Quarter: 2004Q4

REPORT INFORMATION
  Report Type: 
  Country: None (occurrence: None)
  Receive Date: 20041015
  Receipt Date: 20040906
  Transmission Date: 20050328
  Serious: No
  Sender: FDA-Public Use
  Company Number: 2004AP04766

PATIENT
  Age: 52 Year
  Sex: Male

DRUGS (2)
  1. XYLOCAINE [Suspect]
     Indication: LOCAL ANAESTHESIA
     Dosage: 2 DF DAILY TP
     Route: 061
     Dates: start: 20040824, end: 20040824
  2. XYLOCAINE [Suspect]
     Indication: LOCAL ANAESTHESIA
     Dosage: 100 MG ONCE TP
     Route: 061
     Dates: start: 20040824, end: 20040824

REACTIONS (3)
  - FEELING ABNORMAL [None]
  - HYPOTENSION [None]
  - RESPIRATORY DISORDER [None]
